FAERS Safety Report 4968930-X (Version None)
Quarter: 2006Q2

REPORT INFORMATION
  Report Type: 
  Country: None (occurrence: None)
  Receive Date: 20060411
  Receipt Date: 20051019
  Transmission Date: 20061013
  Serious: Yes (Hospitalization)
  Sender: FDA-Public Use
  Company Number: US-MERCK-0510USA08287

PATIENT
  Age: 54 Year
  Sex: Male
  Weight: 89 kg

DRUGS (27)
  1. VIOXX [Suspect]
     Indication: ARTHRITIS
     Route: 048
     Dates: start: 20010103, end: 20040701
  2. VIOXX [Suspect]
     Route: 048
     Dates: start: 20010103, end: 20040701
  3. BETASERON [Concomitant]
     Route: 065
  4. VIAGRA [Concomitant]
     Route: 065
  5. TYLENOL W/ CODEINE NO. 3 [Concomitant]
     Route: 065
  6. [THERAPY UNSPECIFIED] [Concomitant]
     Indication: ROUTINE HEALTH MAINTENANCE
     Route: 065
     Dates: start: 20000101, end: 20051201
  7. NEXIUM [Concomitant]
     Route: 065
  8. PREDNISONE [Concomitant]
     Indication: PAIN
     Route: 065
     Dates: start: 20000101, end: 20020101
  9. VITAMINS (UNSPECIFIED) [Concomitant]
     Route: 065
  10. ZOCOR [Concomitant]
     Route: 065
  11. ATENOLOL [Concomitant]
     Route: 065
     Dates: start: 20030101, end: 20060101
  12. NOW CORAL CALCIUM PLUS [Concomitant]
     Route: 065
  13. LYSINE [Concomitant]
     Route: 065
  14. POTASSIUM (UNSPECIFIED) [Concomitant]
     Route: 065
  15. VITAMIN E [Concomitant]
     Route: 065
  16. ASCORBIC ACID [Concomitant]
     Route: 065
  17. CELEBREX [Concomitant]
     Indication: PAIN
     Route: 065
     Dates: start: 20030301, end: 20030501
  18. MEPERIDINE HYDROCHLORIDE [Concomitant]
     Indication: PAIN
     Route: 065
     Dates: start: 20010101, end: 20020101
  19. ACETAMINOPHEN [Concomitant]
     Indication: PAIN
     Route: 065
     Dates: start: 20000101
  20. PRED FORTE [Concomitant]
     Indication: PAIN
     Route: 065
     Dates: start: 20020101, end: 20030101
  21. LIDODERM [Concomitant]
     Indication: PAIN
     Route: 065
     Dates: start: 20030401, end: 20030501
  22. METHYLPREDNISOLONE [Concomitant]
     Indication: PAIN
     Route: 065
     Dates: start: 20030101, end: 20050101
  23. ADVIL [Concomitant]
     Indication: PAIN
     Route: 065
     Dates: start: 20030101
  24. MOTRIN [Concomitant]
     Indication: PAIN
     Route: 065
     Dates: start: 20030101
  25. ALEVE [Concomitant]
     Indication: PAIN
     Route: 065
     Dates: start: 20010101, end: 20030101
  26. TYLENOL (CAPLET) [Concomitant]
     Route: 065
     Dates: start: 20000101
  27. AMIODARONE [Concomitant]
     Indication: HYPERTENSION
     Route: 065
     Dates: start: 20030101, end: 20050101

REACTIONS (8)
  - ATRIAL FIBRILLATION [None]
  - BLOOD CHOLESTEROL INCREASED [None]
  - FALL [None]
  - HEART RATE ABNORMAL [None]
  - HYPERTENSION [None]
  - LUNG DISORDER [None]
  - MYOCARDIAL INFARCTION [None]
  - ROAD TRAFFIC ACCIDENT [None]
